FAERS Safety Report 15185741 (Version 1)
Quarter: 2018Q3

REPORT INFORMATION
  Report Type: Spontaneous
  Country: US (occurrence: US)
  Receive Date: 20180625
  Receipt Date: 20180625
  Transmission Date: 20181010
  Serious: Yes (Death)
  Sender: FDA-Public Use
  Company Number: None

PATIENT
  Age: 86 Year
  Sex: Male
  Weight: 72.9 kg

DRUGS (10)
  1. HYDROXYUREA. [Suspect]
     Active Substance: HYDROXYUREA
     Indication: MYELOFIBROSIS
     Route: 048
     Dates: start: 20160419, end: 20180618
  2. AMLODIPINE [Concomitant]
     Active Substance: AMLODIPINE BESYLATE
  3. AVODART [Concomitant]
     Active Substance: DUTASTERIDE
  4. LOPID [Concomitant]
     Active Substance: GEMFIBROZIL
  5. ALLEGRA [Concomitant]
     Active Substance: FEXOFENADINE HYDROCHLORIDE
  6. ZOCOR [Concomitant]
     Active Substance: SIMVASTATIN
  7. FLONASE [Concomitant]
     Active Substance: FLUTICASONE PROPIONATE
  8. GLIMEPIRIDE. [Concomitant]
     Active Substance: GLIMEPIRIDE
  9. SOMA [Concomitant]
     Active Substance: CARISOPRODOL
  10. SYNTHROID [Concomitant]
     Active Substance: LEVOTHYROXINE SODIUM

REACTIONS (1)
  - Disease progression [None]
